FAERS Safety Report 8118560-6 (Version None)
Quarter: 2012Q1

REPORT INFORMATION
  Report Type: 
  Country: None (occurrence: None)
  Receive Date: 20120207
  Receipt Date: 20120201
  Transmission Date: 20120608
  Serious: Yes (Hospitalization, Congenital Anomaly, Other)
  Sender: FDA-Public Use
  Company Number: US-PFIZER INC-2011159888

PATIENT
  Sex: Female
  Weight: 3.4 kg

DRUGS (12)
  1. ALBUTEROL [Concomitant]
     Dosage: 90 UG, 1 PUFF 4X/DAY
     Route: 064
     Dates: start: 20031201
  2. MULTI-VITAMINS [Concomitant]
     Dosage: UNK
     Route: 064
  3. ZOLOFT [Suspect]
     Dosage: 50 MG, 1X/DAY
     Route: 064
     Dates: start: 20030911
  4. ZOLOFT [Suspect]
     Indication: ANXIETY
     Dosage: 50MG- HALF TAB ONCE A DAY FOR 1 WEEK AND THEN ONE TAB ONCE A DAY
     Route: 064
     Dates: start: 19990701
  5. PROCTOSOL-HC [Concomitant]
     Dosage: 2.5 %, 2X/DAY
     Route: 064
     Dates: start: 20031210
  6. AMOXICILLIN AND CLAVULANATE POTASSIUM [Concomitant]
     Dosage: 500/125, THREE TIMES A DAY
     Route: 064
     Dates: start: 20031201
  7. METOCLOPRAMIDE [Concomitant]
     Dosage: 10 MG, 3X/DAY
     Route: 064
     Dates: start: 20030613
  8. ACETAMINOPHEN W/ CODEINE [Concomitant]
     Indication: PAIN
     Dosage: 300/30 MG, EVERY 4 -6 HOURS
     Route: 064
     Dates: start: 20030602
  9. MACROBID [Concomitant]
     Indication: INFECTION
     Dosage: 100 MG, 2X/DAY
     Route: 064
     Dates: start: 20031017
  10. TERAZOL 7 [Concomitant]
     Dosage: 0.4 %, BEDTIME
     Route: 064
     Dates: start: 20031015
  11. NITROFURANTOIN [Concomitant]
     Indication: URINARY TRACT INFECTION
     Dosage: 100 UNK, 2X/DAY
     Route: 064
     Dates: start: 20030614
  12. ZOLOFT [Suspect]
     Indication: DEPRESSION
     Dosage: 25 MG, 1X/DAY
     Route: 064
     Dates: start: 20030303

REACTIONS (4)
  - MATERNAL EXPOSURE TIMING UNSPECIFIED [None]
  - PATENT DUCTUS ARTERIOSUS [None]
  - LEFT VENTRICULAR HYPERTROPHY [None]
  - JAUNDICE NEONATAL [None]
